FAERS Safety Report 8814116 (Version 1)
Quarter: 2012Q4

REPORT INFORMATION
  Report Type: 
  Country: US (occurrence: US)
  Receive Date: 20120928
  Receipt Date: 20120928
  Transmission Date: 20130627
  Serious: Yes (Hospitalization)
  Sender: FDA-Public Use
  Company Number: US-BAYER-2012-101008

PATIENT
  Age: 27 Year
  Sex: Female

DRUGS (6)
  1. YAZ [Suspect]
  2. MAXALT [Concomitant]
     Route: 048
  3. COPAXONE [Concomitant]
     Route: 048
  4. TOPAMAX [Concomitant]
     Route: 048
  5. PRILOSEC [Concomitant]
     Route: 048
  6. COMPAZINE [Concomitant]
     Dosage: UNK UNK, PRN
     Route: 048

REACTIONS (1)
  - Cerebral venous thrombosis [None]
